FAERS Safety Report 21321269 (Version 1)
Quarter: 2022Q3

REPORT INFORMATION
  Report Type: Spontaneous
  Country: US (occurrence: None)
  Receive Date: 20220912
  Receipt Date: 20220912
  Transmission Date: 20221027
  Serious: No
  Sender: FDA-Public Use
  Company Number: 2022A313383

PATIENT
  Age: 87 Year
  Sex: Female

DRUGS (1)
  1. PRILOSEC OTC [Suspect]
     Active Substance: OMEPRAZOLE MAGNESIUM
     Indication: Dyspepsia
     Dosage: 40 MILLIGRAM, 1 ONLY (TOOK TWO OF THEM BECAUSE I WAS USING 40MG, ONCE)
     Route: 048

REACTIONS (3)
  - Prescribed overdose [Unknown]
  - Diarrhoea [Recovered/Resolved]
  - Documented hypersensitivity to administered product [Unknown]

NARRATIVE: CASE EVENT DATE: 20220801
